FAERS Safety Report 5765038-0 (Version None)
Quarter: 2008Q2

REPORT INFORMATION
  Report Type: 
  Country: None (occurrence: None)
  Receive Date: 20080611
  Receipt Date: 20080605
  Transmission Date: 20081010
  Serious: Yes (Hospitalization, Other)
  Sender: FDA-Public Use
  Company Number: TW-ASTRAZENECA-2008AP04342

PATIENT
  Age: 17786 Day
  Sex: Female
  Weight: 45.3 kg

DRUGS (3)
  1. IRESSA [Suspect]
     Indication: NON-SMALL CELL LUNG CANCER
     Route: 048
     Dates: start: 20070601, end: 20070820
  2. CISPLATIN [Concomitant]
  3. TAXOL [Concomitant]

REACTIONS (2)
  - ERYTHEMA [None]
  - FOLLICULITIS [None]
